FAERS Safety Report 4941132-9 (Version None)
Quarter: 2006Q1

REPORT INFORMATION
  Report Type: 
  Country: None (occurrence: None)
  Receive Date: 20060307
  Receipt Date: 20060221
  Transmission Date: 20060701
  Serious: Yes (Death)
  Sender: FDA-Public Use
  Company Number: 222593

PATIENT
  Age: 47 Year
  Sex: Male

DRUGS (8)
  1. BEVACIZUMAB OR UNBLINDED(BEVACIZUMAB) PWDR + SOLVENT, INFUSION SOLN, 1 [Suspect]
     Indication: PANCREATIC CARCINOMA METASTATIC
     Dosage: 445 MG, Q2W
     Dates: start: 20060117
  2. ERLOTINIB (ERLOTINIB) TABLET, 150MG [Suspect]
     Indication: PANCREATIC CARCINOMA METASTATIC
     Dosage: 50 MG, QD, ORAL
     Route: 048
     Dates: start: 20060117
  3. GEMCITABINE [Suspect]
     Indication: PANCREATIC CARCINOMA METASTATIC
     Dosage: 2000 MG, 1/WEEK, INTRAVENOUS
     Route: 042
     Dates: start: 20060117
  4. FRAGMIN [Concomitant]
  5. TRANSTEC (BUPRENORPHINE HYDROCHLORIDE) [Concomitant]
  6. GLUCOBAY (ACARBOSE) [Concomitant]
  7. GLUCOPHAGE [Concomitant]
  8. FUROSEMIDE [Concomitant]

REACTIONS (1)
  - CIRCULATORY COLLAPSE [None]
